FAERS Safety Report 9491358 (Version 1)
Quarter: 2013Q3

REPORT INFORMATION
  Report Type: Spontaneous
  Country: US (occurrence: US)
  Receive Date: 20130830
  Receipt Date: 20130830
  Transmission Date: 20140515
  Serious: Yes (Hospitalization)
  Sender: FDA-Public Use
  Company Number: US-ELI_LILLY_AND_COMPANY-US201308007417

PATIENT
  Sex: Male

DRUGS (2)
  1. ZYPREXA RELPREVV [Suspect]
     Dosage: 300 MG, 2/M
     Dates: start: 2010
  2. DEPAKOTE [Concomitant]

REACTIONS (1)
  - Hepatic failure [Recovered/Resolved]
